FAERS Safety Report 6466080-7 (Version None)
Quarter: 2009Q4

REPORT INFORMATION
  Report Type: 
  Country: None (occurrence: None)
  Receive Date: 20091127
  Receipt Date: 20091110
  Transmission Date: 20100525
  Serious: Yes (Other)
  Sender: FDA-Public Use
  Company Number: AVE_01067_2009

PATIENT
  Age: 62 Year
  Sex: Female

DRUGS (11)
  1. CLONIDINE [Suspect]
     Indication: HYPERTENSION
     Dosage: 0.3 MG QD VIA A 1/WEEKLY PATCH TRANSDERMAL
     Route: 062
     Dates: start: 20090920
  2. LISINOPRIL [Concomitant]
  3. INSULIN [Concomitant]
  4. GLUCOPHAGE [Concomitant]
  5. GLIMEPIRIDE [Concomitant]
  6. CLONAZEPAM [Concomitant]
  7. DURAGESIC-100 [Concomitant]
  8. METOPROLOL TARTRATE [Concomitant]
  9. CLONIDINE [Concomitant]
  10. CATAPRES /00171101/ [Concomitant]
  11. INDERAL LA [Concomitant]

REACTIONS (5)
  - BLOOD PRESSURE INADEQUATELY CONTROLLED [None]
  - DRUG EFFECT DECREASED [None]
  - GAIT DISTURBANCE [None]
  - HYPERTENSION [None]
  - VISUAL ACUITY REDUCED [None]
